FAERS Safety Report 10948000 (Version 1)
Quarter: 2015Q1

REPORT INFORMATION
  Report Type: Spontaneous
  Country: DK (occurrence: DK)
  Receive Date: 20150324
  Receipt Date: 20150324
  Transmission Date: 20150721
  Serious: Yes (Other)
  Sender: FDA-Public Use
  Company Number: DK-ROCHE-1555090

PATIENT
  Age: 57 Year
  Sex: Male

DRUGS (1)
  1. ROACTEMRA [Suspect]
     Active Substance: TOCILIZUMAB
     Indication: RHEUMATOID ARTHRITIS
     Dosage: FORM STRENGTH: 20 MG/ML?LAST INFUSION WAS ADMINISTERED ON 02/MAY/2014
     Route: 042
     Dates: start: 20130418

REACTIONS (2)
  - Hepatic enzyme increased [Recovered/Resolved]
  - Hepatitis toxic [Recovered/Resolved]

NARRATIVE: CASE EVENT DATE: 20140530
